FAERS Safety Report 9383573 (Version 2)
Quarter: 2013Q3

REPORT INFORMATION
  Report Type: Spontaneous
  Country: US (occurrence: US)
  Receive Date: 20130704
  Receipt Date: 20130822
  Transmission Date: 20140515
  Serious: No
  Sender: FDA-Public Use
  Company Number: US-PFIZER INC-2013197264

PATIENT
  Age: 61 Year
  Sex: Male
  Weight: 113 kg

DRUGS (3)
  1. PRISTIQ [Suspect]
     Dosage: 180 MG, DAILY
     Dates: start: 2012
  2. CALAN SR [Suspect]
     Dosage: 125 MG, DAILY
     Dates: start: 2012
  3. TRAZODONE [Concomitant]
     Indication: SLEEP DISORDER
     Dosage: 50 MG, DAILY

REACTIONS (1)
  - Malaise [Not Recovered/Not Resolved]
